FAERS Safety Report 7564404-0 (Version None)
Quarter: 2011Q2

REPORT INFORMATION
  Report Type: 
  Country: None (occurrence: None)
  Receive Date: 20110622
  Receipt Date: 20110610
  Transmission Date: 20111010
  Serious: Yes (Other)
  Sender: FDA-Public Use
  Company Number: PHHY2011DE51922

PATIENT
  Age: 65 Year
  Sex: Male

DRUGS (3)
  1. AREDIA [Suspect]
  2. CHEMOTHERAPEUTICS NOS [Concomitant]
  3. CORTISONE ACETATE [Concomitant]

REACTIONS (2)
  - OSTEONECROSIS OF JAW [None]
  - PURULENCE [None]
